FAERS Safety Report 22392836 (Version 3)
Quarter: 2024Q2

REPORT INFORMATION
  Report Type: Spontaneous
  Country: US (occurrence: US)
  Receive Date: 20230601
  Receipt Date: 20240613
  Transmission Date: 20240716
  Serious: No
  Sender: FDA-Public Use
  Company Number: US-SA-SAC20230601000738

PATIENT
  Age: 38 Year
  Sex: Male

DRUGS (1)
  1. DUPIXENT [Suspect]
     Active Substance: DUPILUMAB
     Indication: Dermatitis atopic
     Dosage: 300 MG, QOW
     Route: 058

REACTIONS (8)
  - Gastrooesophageal reflux disease [Unknown]
  - Dysphagia [Unknown]
  - Rosacea [Unknown]
  - Flushing [Unknown]
  - Rash macular [Unknown]
  - Vomiting [Unknown]
  - Dysphagia [Unknown]
  - Product dose omission in error [Unknown]
